FAERS Safety Report 6721182-2 (Version None)
Quarter: 2010Q2

REPORT INFORMATION
  Report Type: 
  Country: None (occurrence: None)
  Receive Date: 20100512
  Receipt Date: 20100512
  Transmission Date: 20101027
  Serious: Yes (Other)
  Sender: FDA-Public Use
  Company Number: None

PATIENT
  Sex: Male
  Weight: 19.9583 kg

DRUGS (1)
  1. CHILDREN'S TYLENOL PLUS 160 MG MCNEIL-PPC [Suspect]
     Indication: NASOPHARYNGITIS
     Dosage: 1 1/2 TSP PO
     Route: 048
     Dates: start: 20100415, end: 20100418

REACTIONS (2)
  - DIARRHOEA [None]
  - EAR INFECTION [None]
